FAERS Safety Report 12146644 (Version 1)
Quarter: 2016Q1

REPORT INFORMATION
  Report Type: Spontaneous
  Country: US (occurrence: US)
  Receive Date: 20160304
  Receipt Date: 20160304
  Transmission Date: 20160526
  Serious: No
  Sender: FDA-Public Use
  Company Number: US-009507513-1602USA013123

PATIENT
  Age: 22 Year
  Sex: Female
  Weight: 55.33 kg

DRUGS (1)
  1. NEXPLANON [Suspect]
     Active Substance: ETONOGESTREL
     Indication: MENSTRUAL CYCLE MANAGEMENT
     Dosage: EVERY 3 YEARS, LEFT ARM-IMPLANT
     Route: 059
     Dates: start: 20160221

REACTIONS (5)
  - Device dislocation [Not Recovered/Not Resolved]
  - Implant site swelling [Unknown]
  - Implant site bruising [Unknown]
  - Complication associated with device [Unknown]
  - Product use issue [Not Recovered/Not Resolved]

NARRATIVE: CASE EVENT DATE: 20160221
